FAERS Safety Report 5446703-1 (Version None)
Quarter: 2007Q3

REPORT INFORMATION
  Report Type: 
  Country: None (occurrence: None)
  Receive Date: 20070907
  Receipt Date: 20070611
  Transmission Date: 20080115
  Serious: No
  Sender: FDA-Public Use
  Company Number: US-BOEHRINGER INGELHEIM PHARMACEUTICALS, INC.-2007-BP-08407BP

PATIENT
  Sex: Male

DRUGS (2)
  1. COMBIVENT [Suspect]
     Indication: COUGH
     Route: 055
     Dates: start: 20050101, end: 20050101
  2. COMBIVENT [Suspect]
     Indication: NASOPHARYNGITIS

REACTIONS (1)
  - DRUG EFFECT INCREASED [None]
